FAERS Safety Report 20474272 (Version 1)
Quarter: 2022Q1

REPORT INFORMATION
  Report Type: Spontaneous
  Country: US (occurrence: US)
  Receive Date: 20220215
  Receipt Date: 20220215
  Transmission Date: 20220423
  Serious: Yes (Other)
  Sender: FDA-Public Use
  Company Number: US-GLAXOSMITHKLINE-US2022GSK027061

PATIENT

DRUGS (8)
  1. ZANTAC [Suspect]
     Active Substance: RANITIDINE HYDROCHLORIDE
     Dosage: UNKNOWN AT THIS TIME PRESCRIPTION
     Dates: start: 200404, end: 201903
  2. ZANTAC [Suspect]
     Active Substance: RANITIDINE HYDROCHLORIDE
     Dosage: PLAINTIFF WILL SUPPLEMENT|PRESCRIPTION
     Dates: start: 200404, end: 201903
  3. ZANTAC [Suspect]
     Active Substance: RANITIDINE HYDROCHLORIDE
     Dosage: UNKNOWN AT THIS TIME PRESCRIPTION
     Dates: start: 200404, end: 201903
  4. ZANTAC [Suspect]
     Active Substance: RANITIDINE HYDROCHLORIDE
     Dosage: PLAINTIFF WILL SUPPLEMENT|PRESCRIPTION
     Dates: start: 200404, end: 201903
  5. RANITIDINE [Suspect]
     Active Substance: RANITIDINE
     Dosage: UNKNOWN AT THIS TIME PRESCRIPTION
     Dates: start: 200404, end: 201903
  6. RANITIDINE [Suspect]
     Active Substance: RANITIDINE
     Dosage: PLAINTIFF WILL SUPPLEMENT|PRESCRIPTION
     Dates: start: 200404, end: 201903
  7. RANITIDINE [Suspect]
     Active Substance: RANITIDINE
     Dosage: UNKNOWN AT THIS TIME PRESCRIPTION
     Dates: start: 200404, end: 201903
  8. RANITIDINE [Suspect]
     Active Substance: RANITIDINE
     Dosage: PLAINTIFF WILL SUPPLEMENT|PRESCRIPTION
     Dates: start: 200404, end: 201903

REACTIONS (3)
  - Renal cancer [Unknown]
  - Hepatic cancer [Unknown]
  - Pancreatic carcinoma [Unknown]
